FAERS Safety Report 12060716 (Version 1)
Quarter: 2016Q1

REPORT INFORMATION
  Report Type: Spontaneous
  Country: JP (occurrence: JP)
  Receive Date: 20160210
  Receipt Date: 20160210
  Transmission Date: 20160526
  Serious: Yes (Other)
  Sender: FDA-Public Use
  Company Number: JP-PFIZER INC-2016033221

PATIENT
  Age: 79 Year
  Sex: Male
  Weight: 62 kg

DRUGS (11)
  1. COMELIAN [Concomitant]
     Active Substance: DILAZEP
     Indication: CHRONIC KIDNEY DISEASE
     Dosage: 2 DF, 3X/DAY
     Route: 048
     Dates: start: 20140628
  2. TAKEPRON [Concomitant]
     Active Substance: LANSOPRAZOLE
     Indication: STEROID THERAPY
     Dosage: 1 DF, 1X/DAY
     Route: 048
     Dates: start: 20140628
  3. LYRICA [Suspect]
     Active Substance: PREGABALIN
     Indication: PAIN IN EXTREMITY
     Dosage: 75 MG, 2X/DAY
     Route: 048
     Dates: start: 20151210, end: 20151211
  4. CRESTOR [Concomitant]
     Active Substance: ROSUVASTATIN CALCIUM
     Indication: DYSLIPIDAEMIA
     Dosage: 1 DF, 1X/DAY
     Route: 048
     Dates: start: 20140628
  5. OLMETEC [Concomitant]
     Active Substance: OLMESARTAN MEDOXOMIL
     Indication: HYPERTENSION
     Dosage: 1 DF, 1X/DAY
     Route: 048
     Dates: start: 20150227
  6. NEUROTROPIN /06251301/ [Concomitant]
     Indication: PAIN IN EXTREMITY
     Dosage: 2 DF, 2X/DAY
     Route: 048
     Dates: start: 20150924
  7. ALOSITOL [Concomitant]
     Active Substance: ALLOPURINOL
     Indication: CHRONIC KIDNEY DISEASE
     Dosage: 1 DF, 1X/DAY
     Route: 048
     Dates: start: 20140628
  8. PREDONINE [Concomitant]
     Active Substance: PREDNISOLONE\PREDNISOLONE ACETATE\PREDNISOLONE SODIUM SUCCINATE
     Indication: MENIERE^S DISEASE
     Dosage: 1 DF, 1X/DAY
     Route: 048
     Dates: start: 20140628
  9. METHYCOBAL [Concomitant]
     Active Substance: METHYLCOBALAMIN
     Indication: PAIN IN EXTREMITY
     Dosage: 1 DF, 2X/DAY
     Route: 048
     Dates: start: 20150910
  10. AMLODIN [Concomitant]
     Active Substance: AMLODIPINE BESYLATE
     Indication: HYPERTENSION
     Dosage: 1 DF, 1X/DAY
     Route: 048
     Dates: start: 20150227
  11. SINGULAIR [Concomitant]
     Active Substance: MONTELUKAST SODIUM
     Indication: ASTHMA
     Dosage: 1 DF, 1X/DAY
     Route: 048
     Dates: start: 20140628

REACTIONS (3)
  - Muscular weakness [Recovered/Resolved]
  - Intentional underdose [Unknown]
  - Dysstasia [Recovered/Resolved]

NARRATIVE: CASE EVENT DATE: 20151210
